FAERS Safety Report 8122835-4 (Version None)
Quarter: 2012Q1

REPORT INFORMATION
  Report Type: 
  Country: None (occurrence: None)
  Receive Date: 20120208
  Receipt Date: 20120203
  Transmission Date: 20120608
  Serious: Yes (Other)
  Sender: FDA-Public Use
  Company Number: BR-PFIZER INC-2012031436

PATIENT
  Age: 66 Year
  Sex: Female

DRUGS (3)
  1. BROMAZEPAM [Concomitant]
     Indication: DEPRESSION
     Dosage: UNK
  2. VENLAFAXINE HCL [Suspect]
     Dosage: UNK
     Route: 048
     Dates: start: 20090101
  3. SYNTHROID [Concomitant]
     Indication: THYROID DISORDER
     Dosage: UNK
     Dates: start: 19720101

REACTIONS (10)
  - SOMNOLENCE [None]
  - VISUAL IMPAIRMENT [None]
  - EUPHORIC MOOD [None]
  - FEELING ABNORMAL [None]
  - TREMOR [None]
  - IRIS DISORDER [None]
  - ANXIETY [None]
  - APATHY [None]
  - ILLUSION [None]
  - TACHYCARDIA [None]
